FAERS Safety Report 19633945 (Version 2)
Quarter: 2021Q3

REPORT INFORMATION
  Report Type: Spontaneous
  Country: US (occurrence: US)
  Receive Date: 20210730
  Receipt Date: 20210810
  Transmission Date: 20211014
  Serious: Yes (Other)
  Sender: FDA-Public Use
  Company Number: US-ROCHE-2877121

PATIENT
  Sex: Female

DRUGS (1)
  1. OCREVUS [Suspect]
     Active Substance: OCRELIZUMAB
     Indication: MULTIPLE SCLEROSIS
     Dosage: UNKNOWN
     Route: 065

REACTIONS (5)
  - Pain in extremity [Unknown]
  - Muscular weakness [Unknown]
  - Pain [Unknown]
  - Facial paralysis [Unknown]
  - Optic neuritis [Unknown]
